FAERS Safety Report 14940262 (Version 2)
Quarter: 2018Q3

REPORT INFORMATION
  Report Type: Report from Study
  Country: US (occurrence: US)
  Receive Date: 20180525
  Receipt Date: 20180817
  Transmission Date: 20181010
  Serious: Yes (Hospitalization)
  Sender: FDA-Public Use
  Company Number: US-SA-2018SA138835

PATIENT
  Age: 53 Year
  Sex: Male
  Weight: 83.9 kg

DRUGS (18)
  1. ZYRTEC [Concomitant]
     Active Substance: CETIRIZINE HYDROCHLORIDE
     Indication: PROPHYLAXIS
     Dosage: 10 MG
     Route: 048
     Dates: start: 20180226, end: 20180228
  2. ALEMTUZUMAB [Suspect]
     Active Substance: ALEMTUZUMAB
     Dosage: UNK
     Route: 041
     Dates: start: 20170220, end: 20170221
  3. BACLOFEN. [Concomitant]
     Active Substance: BACLOFEN
     Indication: NEUROPATHY PERIPHERAL
     Dosage: 10 MG, UNK
     Route: 048
     Dates: start: 2012
  4. LACTOBACILLUS ACIDOPHILUS [Concomitant]
     Active Substance: LACTOBACILLUS ACIDOPHILUS
     Indication: PROPHYLAXIS
     Dosage: 1 DF, UNK
     Route: 048
     Dates: start: 2015
  5. POTASSIUM [Concomitant]
     Active Substance: POTASSIUM
     Indication: PROPHYLAXIS
     Dosage: 99 MG, UNK
     Route: 048
     Dates: start: 2015
  6. BACTRIM DS [Concomitant]
     Active Substance: SULFAMETHOXAZOLE\TRIMETHOPRIM
     Indication: URINARY TRACT INFECTION
     Dosage: 800 MG, UNK
     Route: 048
     Dates: start: 2017
  7. ZANAFLEX [Concomitant]
     Active Substance: TIZANIDINE HYDROCHLORIDE
     Indication: MUSCLE SPASMS
     Dosage: 4 MG
     Route: 048
     Dates: start: 20170104
  8. BACTRIM DS [Concomitant]
     Active Substance: SULFAMETHOXAZOLE\TRIMETHOPRIM
     Dosage: 800 UNK
     Route: 048
     Dates: start: 20170830
  9. VALACYCLOVIR [VALACICLOVIR] [Concomitant]
     Indication: PROPHYLAXIS
     Dosage: 500 MG, UNK
     Route: 048
     Dates: start: 201702
  10. ALEMTUZUMAB [Suspect]
     Active Substance: ALEMTUZUMAB
     Indication: RELAPSING MULTIPLE SCLEROSIS
     Dosage: UNK UNK, UNK
     Route: 041
     Dates: start: 20170214, end: 20170216
  11. VITAMIN D3 [Concomitant]
     Active Substance: CHOLECALCIFEROL
     Indication: PROPHYLAXIS
     Dosage: 5000 IU, UNK
     Route: 048
     Dates: start: 2000
  12. SOLU?MEDROL [Concomitant]
     Active Substance: METHYLPREDNISOLONE SODIUM SUCCINATE
     Indication: PROPHYLAXIS
     Dosage: 1 G
     Route: 041
     Dates: start: 20180226, end: 20180228
  13. IBUPROFEN. [Concomitant]
     Active Substance: IBUPROFEN
     Indication: PROPHYLAXIS
     Dosage: 800 MG
     Route: 048
     Dates: start: 20180226, end: 20180228
  14. ALEMTUZUMAB [Suspect]
     Active Substance: ALEMTUZUMAB
     Dosage: UNK, QD
     Route: 041
     Dates: start: 20180226, end: 20180228
  15. ZANTAC [Concomitant]
     Active Substance: RANITIDINE HYDROCHLORIDE
     Indication: PROPHYLAXIS
     Dosage: 150 MG
     Route: 048
     Dates: start: 20180226, end: 20180228
  16. OXYCODONE [Concomitant]
     Active Substance: OXYCODONE
     Indication: NEUROPATHY PERIPHERAL
     Dosage: 5 MG, UNK
     Route: 048
     Dates: start: 2006
  17. TIZANIDINE. [Concomitant]
     Active Substance: TIZANIDINE
     Indication: NEUROPATHY PERIPHERAL
     Dosage: 4 MG, UNK
     Route: 048
     Dates: start: 201701
  18. BENADRYL [Concomitant]
     Active Substance: DIPHENHYDRAMINE HYDROCHLORIDE
     Indication: PROPHYLAXIS
     Dosage: 50 MG
     Route: 041
     Dates: start: 20180226, end: 20180228

REACTIONS (3)
  - Sternal fracture [Recovered/Resolved]
  - Injury [Recovered/Resolved]
  - Contusion [Recovered/Resolved]

NARRATIVE: CASE EVENT DATE: 20180505
